FAERS Safety Report 12976615 (Version 1)
Quarter: 2016Q4

REPORT INFORMATION
  Report Type: Spontaneous
  Country: US (occurrence: US)
  Receive Date: 20161127
  Receipt Date: 20161127
  Transmission Date: 20170207
  Serious: No
  Sender: FDA-Public Use
  Company Number: US-ASTRAZENECA-2016SF21967

PATIENT
  Age: 1040 Month
  Sex: Male
  Weight: 82.1 kg

DRUGS (2)
  1. PRILOSEC [Suspect]
     Active Substance: OMEPRAZOLE MAGNESIUM
     Indication: OESOPHAGITIS
     Route: 048
     Dates: end: 2016
  2. PRILOSEC [Suspect]
     Active Substance: OMEPRAZOLE MAGNESIUM
     Indication: OESOPHAGITIS
     Dosage: 40 MG ONCE OR TWICE DAILY GENERIC
     Route: 048
     Dates: start: 201610, end: 201611

REACTIONS (5)
  - Oesophagitis [Unknown]
  - Off label use [Unknown]
  - Dyspnoea [Unknown]
  - Intentional product misuse [Unknown]
  - Product use issue [Unknown]

NARRATIVE: CASE EVENT DATE: 201610
